FAERS Safety Report 7631761-6 (Version None)
Quarter: 2011Q3

REPORT INFORMATION
  Report Type: 
  Country: None (occurrence: None)
  Receive Date: 20110725
  Receipt Date: 20110405
  Transmission Date: 20111222
  Serious: No
  Sender: FDA-Public Use
  Company Number: US-BRISTOL-MYERS SQUIBB COMPANY-15595143

PATIENT
  Age: 60 Year
  Sex: Male
  Weight: 91 kg

DRUGS (4)
  1. METOPROLOL TARTRATE [Concomitant]
  2. WARFARIN SODIUM [Suspect]
     Indication: ATRIAL FIBRILLATION
  3. NON-MEDICINAL PRODUCT [Interacting]
  4. GEMFIBROZIL [Concomitant]

REACTIONS (3)
  - INTERNATIONAL NORMALISED RATIO INCREASED [None]
  - WEIGHT INCREASED [None]
  - FOOD INTERACTION [None]
